FAERS Safety Report 21867119 (Version 2)
Quarter: 2023Q1

REPORT INFORMATION
  Report Type: Spontaneous
  Country: US (occurrence: US)
  Receive Date: 20230116
  Receipt Date: 20230130
  Transmission Date: 20230417
  Serious: Yes (Death, Hospitalization)
  Sender: FDA-Public Use
  Company Number: US-TEVA-2023-US-2845722

PATIENT
  Age: 51 Year
  Sex: Male

DRUGS (4)
  1. NOREPINEPHRINE [Suspect]
     Active Substance: NOREPINEPHRINE
     Indication: Cardiac ventricular thrombosis
     Route: 065
  2. HEPARIN [Suspect]
     Active Substance: HEPARIN SODIUM
     Indication: Cardiac ventricular thrombosis
     Dosage: DRIP
     Route: 065
  3. DOBUTAMINE [Suspect]
     Active Substance: DOBUTAMINE HYDROCHLORIDE
     Indication: Cardiac ventricular thrombosis
     Route: 065
  4. PRASUGREL [Concomitant]
     Active Substance: PRASUGREL
     Indication: Cardiac ventricular thrombosis
     Route: 065

REACTIONS (1)
  - Drug ineffective [Fatal]
